FAERS Safety Report 6402560-8 (Version None)
Quarter: 2009Q4

REPORT INFORMATION
  Report Type: 
  Country: None (occurrence: None)
  Receive Date: 20091015
  Receipt Date: 20091009
  Transmission Date: 20100525
  Serious: Yes (Death, Hospitalization)
  Sender: FDA-Public Use
  Company Number: CM-MERCK-0910USA01264

PATIENT
  Age: 50 Year
  Sex: Female
  Weight: 56 kg

DRUGS (4)
  1. STROMECTOL [Suspect]
     Indication: ONCHOCERCIASIS
     Route: 048
     Dates: start: 20090930
  2. STROMECTOL [Suspect]
     Route: 048
     Dates: start: 20060101
  3. STROMECTOL [Suspect]
     Route: 048
     Dates: start: 20070101
  4. STROMECTOL [Suspect]
     Route: 048
     Dates: start: 20080101

REACTIONS (15)
  - ARTHRALGIA [None]
  - BACK PAIN [None]
  - BLOOD PRESSURE ABNORMAL [None]
  - CIRCULATORY COLLAPSE [None]
  - DIARRHOEA [None]
  - FATIGUE [None]
  - FEELING COLD [None]
  - HEADACHE [None]
  - HYPERHIDROSIS [None]
  - PERIPHERAL COLDNESS [None]
  - PURPURA [None]
  - PYREXIA [None]
  - TACHYCARDIA [None]
  - TACHYPNOEA [None]
  - VOMITING [None]
